FAERS Safety Report 9518289 (Version 1)
Quarter: 2013Q1

REPORT INFORMATION
  Report Type: Spontaneous
  Country: US (occurrence: None)
  Receive Date: 20130305
  Receipt Date: 20130305
  Transmission Date: 20140127
  Serious: Yes (Other)
  Sender: FDA-Public Use
  Company Number: 163-21880-12070686

PATIENT
  Age: 64 Year
  Sex: Female
  Weight: 91.63 kg

DRUGS (7)
  1. REVLIMID [Suspect]
     Indication: MYELODYSPLASTIC SYNDROME
     Dosage: 5 MG, ALTERNATE WITH 2 CAPS QOD X 21 D, PO
     Route: 048
     Dates: start: 20120627
  2. ALDACTONE (SPIRONOLACTONE) (UNKNOWN) [Concomitant]
  3. COREG (CARVEDILOL) (UNKNOWN) [Concomitant]
  4. CLOTRIMAZOLE [Suspect]
  5. DEMADEX (TORASEMIDE) (UNKNOWN) [Concomitant]
  6. MIRAPEX (PRAMIPEXOLE DIHYDROCHLORIDE) (UNKNOWN) [Concomitant]
  7. DIGOXIN (DIGOXIN) (UNKNOWN) (DIGOXIN) [Concomitant]

REACTIONS (6)
  - Thyroid function test abnormal [None]
  - Anxiety [None]
  - Rash [None]
  - Asthenia [None]
  - Hypotension [None]
  - Dizziness [None]
